FAERS Safety Report 6242063-7 (Version None)
Quarter: 2009Q2

REPORT INFORMATION
  Report Type: 
  Country: None (occurrence: None)
  Receive Date: 20090622
  Receipt Date: 20090610
  Transmission Date: 20091009
  Serious: Yes (Other)
  Sender: FDA-Public Use
  Company Number: GXKR2009IN06725

PATIENT
  Age: 19 Year
  Sex: Female

DRUGS (6)
  1. DEXAMETHASONE [Suspect]
     Indication: POSTOPERATIVE CARE
     Dosage: 8 MG, ONCE/SINGLE, INTRAVENOUS
     Route: 042
  2. DEXAMETHASONE [Suspect]
     Indication: PROPHYLAXIS
     Dosage: 8 MG, ONCE/SINGLE, INTRAVENOUS
     Route: 042
  3. AMOXICILLIN [Concomitant]
  4. IBUPROFEN [Concomitant]
  5. LIDOCAINE [Concomitant]
  6. EPINEPHRINE [Concomitant]

REACTIONS (4)
  - ABNORMAL BEHAVIOUR [None]
  - HALLUCINATION [None]
  - INAPPROPRIATE AFFECT [None]
  - PSYCHOSIS POSTOPERATIVE [None]
